FAERS Safety Report 4634464-5 (Version None)
Quarter: 2005Q2

REPORT INFORMATION
  Report Type: 
  Country: None (occurrence: None)
  Receive Date: 20050412
  Receipt Date: 20050330
  Transmission Date: 20051028
  Serious: Yes (Life-Threatening, Hospitalization)
  Sender: FDA-Public Use
  Company Number: HQWYE545930MAR05

PATIENT
  Age: 82 Year
  Sex: Female

DRUGS (3)
  1. CORDARONE [Suspect]
     Indication: ATRIAL TACHYCARDIA
     Dosage: 200 MG 1X PER 1 DAY ORAL
     Route: 048
     Dates: start: 20020215, end: 20030227
  2. MODURETIC 5-50 [Suspect]
     Dosage: 1 UNIT 1X PER 1 DAY ORAL
     Route: 048
     Dates: end: 20030227
  3. RAMIPRIL [Concomitant]

REACTIONS (10)
  - BLOOD CREATININE INCREASED [None]
  - ELECTROCARDIOGRAM QT PROLONGED [None]
  - ESCHERICHIA SEPSIS [None]
  - FALL [None]
  - HYPERTHERMIA [None]
  - LEUKOCYTOSIS [None]
  - LOSS OF CONSCIOUSNESS [None]
  - MALAISE [None]
  - TORSADE DE POINTES [None]
  - UROSEPSIS [None]
